FAERS Safety Report 9203579 (Version 1)
Quarter: 2013Q1

REPORT INFORMATION
  Report Type: Spontaneous
  Country: US (occurrence: None)
  Receive Date: 20120709
  Receipt Date: 20120709
  Transmission Date: 20140127
  Serious: Yes (Other)
  Sender: FDA-Public Use
  Company Number: PHHY2011US72022

PATIENT
  Sex: Female
  Weight: 140 kg

DRUGS (12)
  1. GLEEVEC (IMATINIB) [Suspect]
     Indication: CHRONIC MYELOID LEUKAEMIA
     Route: 048
  2. CENTRUM (MINERALS NOS, VITAMINS NOS [Concomitant]
  3. NEURONTIN (GABAPENTIN) [Concomitant]
  4. SYNTHROID (LEVOTHYROXINE SODIUM) [Concomitant]
  5. VITAMIN E (TOCOPHEROL) [Concomitant]
  6. NEXIUM (ESOMPRAZOLE MAGNESIUM) [Concomitant]
  7. VITAMIN C [Concomitant]
  8. LEXAPRO (ESCITALOPRAM OXALATE) [Concomitant]
  9. VITAMIN B12 (CYANOCOBALAMIN) [Concomitant]
  10. MAGNESIUM (MAGNESIUM) [Concomitant]
  11. CITRACAL + D (CALCIUM CITRATE, ERGOCALCIFEROL) [Concomitant]
  12. ESTROVEN /02150801/ (BORON, CALCIUM, CIMICIFUGA RACEMOSA EXTRACT, FOLIC ACID, GLYCINE MAX EXTRACT, MAGNOLIA OFFINALIS, NICOTINIC ACID, PYRIDOXINE HYDROCHLORIDE, RIBOFLAVIN, SELENIUM, THIAMINE, TOCOPHEROL, VITAMIN B12 NOS) [Concomitant]

REACTIONS (1)
  - Nausea [None]
